FAERS Safety Report 8592467-2 (Version None)
Quarter: 2012Q3

REPORT INFORMATION
  Report Type: 
  Country: None (occurrence: None)
  Receive Date: 20120814
  Receipt Date: 20120807
  Transmission Date: 20120928
  Serious: Yes (Hospitalization)
  Sender: FDA-Public Use
  Company Number: JP-VERTEX PHARMACEUTICALS INC.-AE-2012-010603

PATIENT
  Age: 68 Year
  Sex: Female

DRUGS (9)
  1. RIBAVIRIN [Concomitant]
     Route: 048
     Dates: start: 20120627, end: 20120702
  2. TELAVIC [Suspect]
     Indication: HEPATITIS C
     Route: 048
     Dates: start: 20120605
  3. RIBAVIRIN [Concomitant]
     Route: 048
     Dates: start: 20120703
  4. FERROUS CITRATE [Concomitant]
     Route: 048
     Dates: start: 20120610
  5. POSTERISAN [Concomitant]
     Route: 061
     Dates: start: 20120618
  6. RIBAVIRIN [Concomitant]
     Route: 048
     Dates: start: 20120605, end: 20120626
  7. PEGINTERFERON ALFA-2B [Concomitant]
     Route: 058
     Dates: start: 20120605
  8. LOBU [Concomitant]
     Route: 048
     Dates: start: 20120605
  9. CLARITIN [Concomitant]
     Route: 048
     Dates: start: 20120610

REACTIONS (1)
  - CEREBRAL HAEMORRHAGE [None]
